FAERS Safety Report 25951318 (Version 2)
Quarter: 2025Q4

REPORT INFORMATION
  Report Type: Report from Study
  Country: EU (occurrence: EU)
  Receive Date: 20251023
  Receipt Date: 20251031
  Transmission Date: 20260119
  Serious: Yes (Hospitalization)
  Sender: ABBVIE
  Company Number: EU-ABBVIE-6513486

PATIENT
  Age: 77 Year
  Sex: Male

DRUGS (2)
  1. FOSCARBIDOPA\FOSLEVODOPA [Suspect]
     Active Substance: FOSCARBIDOPA\FOSLEVODOPA
     Indication: Parkinson^s disease
     Dosage: CRN: 0.27 ML/H, CR: 0.49 ML/H, CRH: 0.51 ML/H, ED: 0.2 ML?LAST ADMIN DATE: 2025
     Route: 058
     Dates: start: 20250801
  2. FOSCARBIDOPA\FOSLEVODOPA [Suspect]
     Active Substance: FOSCARBIDOPA\FOSLEVODOPA
     Dosage: CR: 0.51 ML/H, CRH: 0.53 ML/H; CRN: 0.27 ML/H; ED: 0.2 ML?FIRST ADMIN DATE: 2025
     Route: 058

REACTIONS (2)
  - Skin ulcer [Unknown]
  - Infusion site abscess [Recovering/Resolving]

NARRATIVE: CASE EVENT DATE: 20250101
